FAERS Safety Report 20216127 (Version 2)
Quarter: 2023Q1

REPORT INFORMATION
  Report Type: Spontaneous
  Country: DE (occurrence: DE)
  Receive Date: 20211222
  Receipt Date: 20230114
  Transmission Date: 20230417
  Serious: Yes (Hospitalization)
  Sender: FDA-Public Use
  Company Number: DE-NOVARTISPH-NVSC2021DE289204

PATIENT
  Age: 64 Year
  Sex: Male
  Weight: 92 kg

DRUGS (6)
  1. HYDROCHLOROTHIAZIDE [Suspect]
     Active Substance: HYDROCHLOROTHIAZIDE
     Indication: Product used for unknown indication
     Dosage: 12.5 MG, QD (1-0-0-0, TABLETTEN)
     Route: 048
  2. CANDESARTAN [Concomitant]
     Active Substance: CANDESARTAN
     Indication: Product used for unknown indication
     Dosage: 16 MG, QD (2-0-0-0, TABLETTEN)
     Route: 048
  3. URSODEOXYCHOLIC AC [Concomitant]
     Indication: Product used for unknown indication
     Dosage: 150 MG, QD (1-0-0-0, TABLETTEN)
     Route: 048
  4. PANTOPRAZOLE [Concomitant]
     Active Substance: PANTOPRAZOLE
     Indication: Product used for unknown indication
     Dosage: 40 MG, QD (1-0-0-0, RETARD-TABLETTEN)
     Route: 048
  5. ALLOPURINOL [Concomitant]
     Active Substance: ALLOPURINOL
     Indication: Product used for unknown indication
     Dosage: 100 MG, QD (0-0-1-0, TABLETTEN)
     Route: 048
  6. TAMSULOSIN [Concomitant]
     Active Substance: TAMSULOSIN
     Indication: Product used for unknown indication
     Dosage: 0.4 MG, QD (1-0-0-0, RETARD-TABLETTEN)
     Route: 048

REACTIONS (3)
  - Abdominal pain upper [Unknown]
  - Pain [Unknown]
  - Product administration error [Unknown]

NARRATIVE: CASE EVENT DATE: 20210409
